FAERS Safety Report 10654316 (Version 1)
Quarter: 2014Q4

REPORT INFORMATION
  Report Type: Spontaneous
  Country: US (occurrence: None)
  Receive Date: 20141215
  Receipt Date: 20141215
  Transmission Date: 20150529
  Serious: Yes (Other)
  Sender: FDA-Public Use
  Company Number: None

PATIENT
  Age: 54 Year
  Sex: Female

DRUGS (1)
  1. COPAXONE [Suspect]
     Active Substance: GLATIRAMER ACETATE
     Indication: MULTIPLE SCLEROSIS
     Dosage: 20MG?QD?SUBQ
     Route: 058
     Dates: start: 201411

REACTIONS (4)
  - Injection site pruritus [None]
  - Dizziness [None]
  - Chest pain [None]
  - Injection site pain [None]

NARRATIVE: CASE EVENT DATE: 20141106
